FAERS Safety Report 12192819 (Version 1)
Quarter: 2016Q1

REPORT INFORMATION
  Report Type: Spontaneous
  Country: FR (occurrence: FR)
  Receive Date: 20160318
  Receipt Date: 20160318
  Transmission Date: 20160526
  Serious: Yes (Death, Other)
  Sender: FDA-Public Use
  Company Number: FR-PFIZER INC-2016156990

PATIENT
  Age: 72 Year
  Sex: Female

DRUGS (10)
  1. CELLCEPT [Suspect]
     Active Substance: MYCOPHENOLATE MOFETIL\MYCOPHENOLATE MOFETIL HYDROCHLORIDE
     Indication: RENAL TRANSPLANT
     Dosage: 500 MG, 2X/DAY
     Route: 048
     Dates: start: 20160214, end: 20160302
  2. THYMOGLOBULINE [Suspect]
     Active Substance: LAPINE T-LYMPHOCYTE IMMUNE GLOBULIN
     Indication: RENAL TRANSPLANT
     Dosage: 200 MG, 1X/DAY
     Route: 042
     Dates: start: 20160213, end: 20160217
  3. AMLODIPINE [Suspect]
     Active Substance: AMLODIPINE BESYLATE
     Indication: HYPERTENSION
     Dosage: 10 MG, 1X/DAY
     Route: 048
     Dates: start: 20160225, end: 20160304
  4. NEORAL [Suspect]
     Active Substance: CYCLOSPORINE
     Indication: RENAL TRANSPLANT
     Dosage: 150 MG, 2X/DAY
     Route: 048
     Dates: start: 20160217, end: 20160304
  5. BACTRIM [Suspect]
     Active Substance: SULFAMETHOXAZOLE\TRIMETHOPRIM
     Indication: INFECTION PROPHYLAXIS
     Dosage: 1 DF, THREE TIMES IN WEEK
     Route: 048
     Dates: start: 20160217, end: 201603
  6. CORTANCYL [Suspect]
     Active Substance: PREDNISONE
     Indication: RENAL TRANSPLANT
     Dosage: 30 MG, 1X/DAY
     Route: 048
     Dates: start: 20160214, end: 20160304
  7. INEXIUM /01479302/ [Suspect]
     Active Substance: ESOMEPRAZOLE MAGNESIUM
     Indication: PROPHYLAXIS AGAINST GASTROINTESTINAL ULCER
     Dosage: 40 MG, 1X/DAY
     Route: 048
     Dates: start: 20160214, end: 20160304
  8. FUNGIZONE [Suspect]
     Active Substance: AMPHOTERICIN B
     Indication: INFECTION PROPHYLAXIS
     Dosage: 1 DF, 1X/DAY
     Route: 048
     Dates: start: 20160213, end: 20160304
  9. TAHOR [Suspect]
     Active Substance: ATORVASTATIN CALCIUM
     Indication: DYSLIPIDAEMIA
     Dosage: 10 MG, 1X/DAY
     Route: 048
     Dates: start: 20160219, end: 20160304
  10. LASILIX /00032601/ [Suspect]
     Active Substance: FUROSEMIDE
     Indication: HYPERTENSION
     Dosage: 80 MG, 1X/DAY
     Route: 048
     Dates: start: 20160217, end: 20160304

REACTIONS (12)
  - Lymphopenia [Fatal]
  - Haematoma [Unknown]
  - Septic shock [Unknown]
  - Hepatomegaly [Unknown]
  - Erysipelas [Unknown]
  - Urinary tract infection bacterial [Unknown]
  - Platelet count decreased [Fatal]
  - Oedema peripheral [Unknown]
  - Biliary cyst [Unknown]
  - Multiple organ dysfunction syndrome [Fatal]
  - Neutropenia [Fatal]
  - Escherichia bacteraemia [Unknown]

NARRATIVE: CASE EVENT DATE: 20160303
